FAERS Safety Report 7598548-4 (Version None)
Quarter: 2011Q3

REPORT INFORMATION
  Report Type: 
  Country: None (occurrence: None)
  Receive Date: 20110708
  Receipt Date: 20110701
  Transmission Date: 20111222
  Serious: Yes (Other)
  Sender: FDA-Public Use
  Company Number: FR-ELI_LILLY_AND_COMPANY-FR201103000196

PATIENT
  Age: 43 Year
  Sex: Male
  Weight: 119 kg

DRUGS (6)
  1. PREVISCAN [Concomitant]
     Indication: PULMONARY EMBOLISM
     Dosage: UNK
     Route: 048
     Dates: start: 20050101
  2. METFORMIN HCL [Concomitant]
     Indication: TYPE 2 DIABETES MELLITUS
     Dosage: 2 G, DAILY (1/D)
     Route: 048
     Dates: start: 19980101, end: 20100101
  3. BISOPROLOL FUMARATE AND HYDROCHLOROTHIAZIDE [Concomitant]
     Indication: HYPERTENSION
     Dosage: 10 MG, QD
     Route: 048
     Dates: start: 20050101
  4. BYETTA [Suspect]
     Indication: TYPE 2 DIABETES MELLITUS
     Dosage: 10 UG, 2/D
     Route: 058
     Dates: start: 20080901, end: 20100901
  5. BYETTA [Suspect]
     Dosage: 10 UG, 2/D
     Route: 058
     Dates: start: 20110205
  6. VICTOZA [Concomitant]
     Indication: TYPE 2 DIABETES MELLITUS
     Dosage: 1.8 MG, DAILY (1/D)
     Route: 058
     Dates: start: 20100901, end: 20101215

REACTIONS (3)
  - WEIGHT DECREASED [None]
  - RENAL FAILURE [None]
  - PANCREATITIS [None]
